FAERS Safety Report 5819102-8 (Version None)
Quarter: 2008Q3

REPORT INFORMATION
  Report Type: 
  Country: None (occurrence: None)
  Receive Date: 20080721
  Receipt Date: 20080721
  Transmission Date: 20090109
  Serious: Yes (Hospitalization)
  Sender: FDA-Public Use
  Company Number: None

PATIENT

DRUGS (2)
  1. CLOPIDOGREL [Suspect]
     Indication: CORONARY ARTERIAL STENT INSERTION
     Dosage: 75 MG EVERY DAY PO
     Route: 048
     Dates: start: 20080625
  2. EPTIFIBATIDE [Suspect]
     Indication: CORONARY ARTERIAL STENT INSERTION
     Dosage: IV
     Route: 042

REACTIONS (4)
  - CONDITION AGGRAVATED [None]
  - IRON DEFICIENCY ANAEMIA [None]
  - LOWER GASTROINTESTINAL HAEMORRHAGE [None]
  - UPPER GASTROINTESTINAL HAEMORRHAGE [None]
